FAERS Safety Report 4519913-5 (Version None)
Quarter: 2004Q4

REPORT INFORMATION
  Report Type: 
  Country: None (occurrence: None)
  Receive Date: 20041202
  Receipt Date: 20041202
  Transmission Date: 20050328
  Serious: Yes (Life-Threatening)
  Sender: FDA-Public Use
  Company Number: None

PATIENT
  Age: 69 Year
  Sex: Female
  Weight: 83.6 kg

DRUGS (2)
  1. MORPHINE [Suspect]
     Indication: PAIN
     Dates: start: 20040804, end: 20040804
  2. FENTANYL [Suspect]
     Indication: PAIN
     Dates: start: 20040804, end: 20040804

REACTIONS (4)
  - DEPRESSED LEVEL OF CONSCIOUSNESS [None]
  - OXYGEN SATURATION DECREASED [None]
  - RESPIRATORY DEPRESSION [None]
  - SEDATION [None]
